FAERS Safety Report 9313210 (Version 1)
Quarter: 2013Q2

REPORT INFORMATION
  Report Type: Spontaneous
  Country: US (occurrence: US)
  Receive Date: 20130528
  Receipt Date: 20130528
  Transmission Date: 20140414
  Serious: No
  Sender: FDA-Public Use
  Company Number: US-ABBOTT-13P-163-1060561-00

PATIENT
  Age: 59 Year
  Sex: Female

DRUGS (1)
  1. ANDROGEL [Suspect]
     Indication: PRODUCT USED FOR UNKNOWN INDICATION

REACTIONS (5)
  - Blister [Not Recovered/Not Resolved]
  - Rash papular [Not Recovered/Not Resolved]
  - Skin exfoliation [Not Recovered/Not Resolved]
  - Wound secretion [Not Recovered/Not Resolved]
  - Accidental exposure to product [Not Recovered/Not Resolved]
